FAERS Safety Report 18713001 (Version 1)
Quarter: 2021Q1

REPORT INFORMATION
  Report Type: Spontaneous
  Country: US (occurrence: US)
  Receive Date: 20210107
  Receipt Date: 20210107
  Transmission Date: 20210419
  Serious: Yes (Hospitalization, Other)
  Sender: FDA-Public Use
  Company Number: US-VELOXIS PHARMACEUTICALS-2020VELUS-001115

PATIENT
  Age: 23 Year
  Sex: Female

DRUGS (4)
  1. STEROIDS [Suspect]
     Active Substance: UNSPECIFIED INGREDIENT
     Indication: IMMUNOSUPPRESSION
     Dosage: UNK
  2. ENVARSUS XR [Suspect]
     Active Substance: TACROLIMUS
     Indication: ANTI-GLOMERULAR BASEMENT MEMBRANE DISEASE
  3. ENVARSUS XR [Suspect]
     Active Substance: TACROLIMUS
     Indication: IMMUNOSUPPRESSION
     Dosage: UNK
  4. AZATHIOPRINE. [Suspect]
     Active Substance: AZATHIOPRINE
     Indication: IMMUNOSUPPRESSION
     Dosage: UNK

REACTIONS (7)
  - Renal failure [Unknown]
  - Hypertension [Unknown]
  - Premature rupture of membranes [Unknown]
  - Respiratory failure [Unknown]
  - Parainfluenzae virus infection [Unknown]
  - Exposure during pregnancy [Unknown]
  - Off label use [Unknown]
